FAERS Safety Report 13178097 (Version 2)
Quarter: 2017Q1

REPORT INFORMATION
  Report Type: Report from Study
  Country: DE (occurrence: DE)
  Receive Date: 20170202
  Receipt Date: 20170207
  Transmission Date: 20170428
  Serious: Yes (Hospitalization)
  Sender: FDA-Public Use
  Company Number: DE-TEVA-733921ACC

PATIENT
  Age: 78 Year
  Sex: Female
  Weight: 55 kg

DRUGS (6)
  1. ASPIRIN. [Concomitant]
     Active Substance: ASPIRIN
     Indication: THROMBOSIS PROPHYLAXIS
     Dosage: 100 MILLIGRAM DAILY;
     Route: 048
     Dates: end: 20170119
  2. TREANDA [Suspect]
     Active Substance: BENDAMUSTINE HYDROCHLORIDE
     Indication: PLASMA CELL MYELOMA
     Dosage: 117 MG,  IN 1 CYCLICAL
     Route: 042
     Dates: start: 20160531, end: 20161230
  3. BORTEZOMIB [Suspect]
     Active Substance: BORTEZOMIB
     Indication: PLASMA CELL MYELOMA
     Dosage: 1.2 MG, IN 1 CYCLICAL
     Route: 058
     Dates: start: 20160531, end: 20170112
  4. PREDNISONE. [Suspect]
     Active Substance: PREDNISONE
     Indication: PLASMA CELL MYELOMA
     Dosage: 100 MG, IN 1 CYCLICAL
     Route: 048
     Dates: start: 20160531, end: 20170101
  5. SEEBRI [Concomitant]
     Active Substance: GLYCOPYRRONIUM
     Indication: NASOPHARYNGITIS
     Dosage: 44 MILLIGRAM DAILY;
     Route: 048
     Dates: end: 20170119
  6. PROTAPHAN [Concomitant]
     Indication: DIABETES MELLITUS
     Dosage: 18 IE, ONCE DAILY
     Route: 065

REACTIONS (1)
  - Lung infection [Recovered/Resolved]

NARRATIVE: CASE EVENT DATE: 20170119
